FAERS Safety Report 23369243 (Version 1)
Quarter: 2024Q1

REPORT INFORMATION
  Report Type: Spontaneous
  Country: ES (occurrence: ES)
  Receive Date: 20240105
  Receipt Date: 20240105
  Transmission Date: 20240410
  Serious: Yes (Hospitalization, Other)
  Sender: FDA-Public Use
  Company Number: ES-AEMPS-1467377

PATIENT
  Age: 40 Year
  Sex: Male
  Weight: 71.6 kg

DRUGS (5)
  1. CIPROFLOXACIN [Interacting]
     Active Substance: CIPROFLOXACIN
     Indication: Lower respiratory tract infection
     Dosage: UNK
     Route: 042
     Dates: start: 20231009, end: 20231014
  2. MEROPENEM [Interacting]
     Active Substance: MEROPENEM
     Indication: Lower respiratory tract infection
     Dosage: 1 GRAM, 3 TIMES A DAY
     Route: 042
     Dates: start: 20231020, end: 20231024
  3. CEFTAZIDIME [Interacting]
     Active Substance: CEFTAZIDIME
     Indication: Genitourinary tract infection
     Dosage: UNK
     Route: 042
     Dates: start: 20231007, end: 20231014
  4. AMIKACIN SULFATE [Interacting]
     Active Substance: AMIKACIN SULFATE
     Indication: Lower respiratory tract infection
     Dosage: 500 MILLIGRAM
     Route: 042
     Dates: start: 20231007, end: 20231007
  5. VANCOMYCIN [Interacting]
     Active Substance: VANCOMYCIN
     Indication: Bacterial infection
     Dosage: UNK
     Route: 042
     Dates: start: 20231023, end: 20231026

REACTIONS (1)
  - Pseudomembranous colitis [Recovered/Resolved]

NARRATIVE: CASE EVENT DATE: 20231026
